FAERS Safety Report 19273065 (Version 2)
Quarter: 2021Q2

REPORT INFORMATION
  Report Type: Spontaneous
  Country: JP (occurrence: JP)
  Receive Date: 20210519
  Receipt Date: 20210525
  Transmission Date: 20210717
  Serious: Yes (Death)
  Sender: FDA-Public Use
  Company Number: JP-TEVA-2021-JP-1912221

PATIENT
  Age: 7 Decade
  Sex: Male
  Weight: 79 kg

DRUGS (4)
  1. OLANZAPINE. [Suspect]
     Active Substance: OLANZAPINE
     Indication: SCHIZOPHRENIA
     Route: 065
  2. FLUNITRAZEPAM [Suspect]
     Active Substance: FLUNITRAZEPAM
     Indication: SCHIZOPHRENIA
     Route: 065
  3. NITRAZEPAM [Suspect]
     Active Substance: NITRAZEPAM
     Indication: SCHIZOPHRENIA
     Route: 065
  4. LEVOMEPROMAZINE [Suspect]
     Active Substance: LEVOMEPROMAZINE
     Indication: SCHIZOPHRENIA
     Route: 065

REACTIONS (3)
  - Heat stroke [Fatal]
  - Sedation [Fatal]
  - Drug level above therapeutic [Fatal]
